FAERS Safety Report 6774251-5 (Version None)
Quarter: 2010Q2

REPORT INFORMATION
  Report Type: 
  Country: None (occurrence: None)
  Receive Date: 20100617
  Receipt Date: 20100608
  Transmission Date: 20101027
  Serious: Yes (Other)
  Sender: FDA-Public Use
  Company Number: BR-PFIZER INC-2010072028

PATIENT
  Age: 53 Year
  Sex: Female
  Weight: 60 kg

DRUGS (2)
  1. CAMPTOSAR [Suspect]
     Indication: NEOPLASM
     Dosage: 290 MG, EVERY 15 DAYS
     Route: 042
     Dates: start: 20100512
  2. ANGIPRESS [Concomitant]
     Indication: HYPERTENSION
     Route: 048

REACTIONS (3)
  - BACK PAIN [None]
  - DYSLALIA [None]
  - MALAISE [None]
